FAERS Safety Report 5108481-5 (Version None)
Quarter: 2006Q3

REPORT INFORMATION
  Report Type: 
  Country: None (occurrence: None)
  Receive Date: 20060914
  Receipt Date: 20060821
  Transmission Date: 20061208
  Serious: Yes (Hospitalization)
  Sender: FDA-Public Use
  Company Number: 6023134

PATIENT
  Age: 87 Year
  Sex: Female

DRUGS (6)
  1. CARDENSIEL (1.25 MG, TABLET) (BISOPROLOL FUMARATE) [Suspect]
     Indication: ISCHAEMIC CARDIOMYOPATHY
     Dosage: 1,25 MG (1,25 MG, 1 D) ORAL
     Route: 048
  2. PREVISCAN (20 MG, TABLET) (FLUINDIONE) [Suspect]
     Indication: PULMONARY EMBOLISM
     Dosage: 20 MG (20 MG, 1 D) ORAL
     Route: 048
     Dates: end: 20060508
  3. AUGMENTIN '125' [Suspect]
     Indication: BRONCHITIS ACUTE
     Dosage: 2 GM (2 GM) ORAL
     Route: 048
  4. LASIX [Suspect]
     Indication: DRUG USE FOR UNKNOWN INDICATION
     Dosage: 40 MG, (40 MG, 1 D) ORAL
     Route: 048
  5. RAMIPRIL [Suspect]
     Indication: ISCHAEMIC CARDIOMYOPATHY
     Dosage: 5 MG (5 MG, 1 D) ORAL
     Route: 048
  6. TIAPRIDAL (TIAPRIDE) [Suspect]
     Indication: DRUG USE FOR UNKNOWN INDICATION
     Dosage: 100 MG (100 MG, 1 D) ORAL
     Route: 048

REACTIONS (11)
  - AGGRESSION [None]
  - ANAEMIA [None]
  - CONFUSIONAL STATE [None]
  - DRUG INTERACTION [None]
  - HYPOTENSION [None]
  - HYPOVOLAEMIA [None]
  - INTERNATIONAL NORMALISED RATIO INCREASED [None]
  - MUCOSAL DRYNESS [None]
  - MUCOUS MEMBRANE DISORDER [None]
  - RECTAL HAEMORRHAGE [None]
  - RENAL FAILURE ACUTE [None]
